FAERS Safety Report 5671767-X (Version None)
Quarter: 2008Q2

REPORT INFORMATION
  Report Type: 
  Country: None (occurrence: None)
  Receive Date: 20080227
  Receipt Date: 20070312
  Transmission Date: 20081010
  Serious: Yes (Other)
  Sender: FDA-Public Use
  Company Number: HQWYE756121DEC06

PATIENT
  Age: 58 Year
  Sex: Female

DRUGS (2)
  1. EFFEXOR [Suspect]
     Indication: DEPRESSION
     Dosage: DOUBLED THE DOSE
     Dates: start: 20050101, end: 20060101
  2. EFFEXOR [Suspect]
     Indication: DEPRESSION
     Dosage: DOUBLED THE DOSE
     Dates: start: 20060101, end: 20060101

REACTIONS (2)
  - ABNORMAL BEHAVIOUR [None]
  - GAMBLING [None]
